FAERS Safety Report 9104242 (Version 1)
Quarter: 2013Q1

REPORT INFORMATION
  Report Type: Spontaneous
  Country: CA (occurrence: CA)
  Receive Date: 20130219
  Receipt Date: 20130219
  Transmission Date: 20140127
  Serious: Yes (Other)
  Sender: FDA-Public Use
  Company Number: PHHY2013CA014914

PATIENT
  Sex: Female

DRUGS (3)
  1. DIOVAN [Suspect]
     Indication: HYPERTENSION
     Dosage: 80 MG, UNK
     Route: 048
  2. DIOVAN [Suspect]
     Dosage: 40 MG, UNK
  3. DIOVAN [Suspect]
     Dosage: 40 MG, UNK

REACTIONS (3)
  - Fall [Unknown]
  - Upper limb fracture [Unknown]
  - Hypotension [Unknown]
